FAERS Safety Report 20197715 (Version 1)
Quarter: 2021Q4

REPORT INFORMATION
  Report Type: Spontaneous
  Country: DE (occurrence: DE)
  Receive Date: 20211217
  Receipt Date: 20211217
  Transmission Date: 20220304
  Serious: Yes (Hospitalization, Other)
  Sender: FDA-Public Use
  Company Number: DE-ADRED-07438-01

PATIENT
  Age: 72 Year
  Sex: Male
  Weight: 69 kg

DRUGS (11)
  1. CINACALCET HYDROCHLORIDE [Suspect]
     Active Substance: CINACALCET HYDROCHLORIDE
     Indication: Product used for unknown indication
     Dosage: 30 MG, 0-0-3-0, TABLETS
     Route: 048
  2. RENAVIT [Concomitant]
     Dosage: 1-0-0-0, TABLETS
     Route: 048
  3. PREGABALIN [Concomitant]
     Active Substance: PREGABALIN
     Dosage: 75 MG, 0-0-1-0, RETARD-KAPSELN
     Route: 048
  4. BUDESONIDE [Concomitant]
     Active Substance: BUDESONIDE
     Dosage: 0.5 MG/2ML, 1-0-1-0, SUSPENSION FOR A NEBULIZER
     Route: 055
  5. CARVEDILOL [Concomitant]
     Active Substance: CARVEDILOL
     Dosage: 25 MG, 1-0-0-0, TABLETS
     Route: 048
  6. AMLODIPINE [Concomitant]
     Active Substance: AMLODIPINE BESYLATE
     Dosage: 5 MG, 1-0-1-0, TABLETS
     Route: 048
  7. METOCLOPRAMIDE [Concomitant]
     Active Substance: METOCLOPRAMIDE
     Dosage: 10 MG, 1-1-0-0, TABLETS
     Route: 048
  8. DALTEPARIN [Concomitant]
     Active Substance: DALTEPARIN
     Dosage: 5000 IE, 0-0-1-0, PRE-FILLED SYRINGES
     Route: 058
  9. PANTOPRAZOLE [Concomitant]
     Active Substance: PANTOPRAZOLE
     Dosage: 40 MG, 1-0-0-0, PROLONGED RELEASE TABLETS
     Route: 048
  10. CLOPIDOGREL [Concomitant]
     Active Substance: CLOPIDOGREL BISULFATE
     Dosage: 75 MG, 1-0-0-0, TABLETS
     Route: 048
  11. METAMIZOL [Concomitant]
     Active Substance: METAMIZOLE SODIUM
     Dosage: 500 MG/ML, 40-40-40-40, DROPS
     Route: 048

REACTIONS (4)
  - Pain [Unknown]
  - Hyperkalaemia [Unknown]
  - Fall [Unknown]
  - Product monitoring error [Unknown]

NARRATIVE: CASE EVENT DATE: 20210421
